FAERS Safety Report 8896670 (Version 1)
Quarter: 2012Q4

REPORT INFORMATION
  Report Type: Spontaneous
  Country: US (occurrence: None)
  Receive Date: 20121107
  Receipt Date: 20121107
  Transmission Date: 20130627
  Serious: Yes (Other)
  Sender: FDA-Public Use
  Company Number: None

PATIENT
  Age: 55 Year
  Sex: Female

DRUGS (1)
  1. MCKESSON INSTANT HAND SANITIZER WITH ALOE [Suspect]
     Dosage: 10-18-19

REACTIONS (2)
  - Perfume sensitivity [None]
  - Hypersensitivity [None]
